FAERS Safety Report 25874086 (Version 1)
Quarter: 2025Q4

REPORT INFORMATION
  Report Type: Spontaneous
  Country: US (occurrence: None)
  Receive Date: 20251002
  Receipt Date: 20251002
  Transmission Date: 20260118
  Serious: Yes (Hospitalization)
  Sender: FDA-CTU
  Company Number: None

PATIENT
  Sex: Female

DRUGS (1)
  1. TREMFYA [Suspect]
     Active Substance: GUSELKUMAB
     Indication: Senile osteoporosis
     Dosage: OTHER FREQUENCY : EVERY 8 WEEKS;?
     Route: 058
     Dates: start: 20250513

REACTIONS (6)
  - Hiatus hernia [None]
  - Chest pain [None]
  - Dyspnoea [None]
  - Pruritus [None]
  - Skin burning sensation [None]
  - Rash erythematous [None]
